FAERS Safety Report 10950121 (Version 2)
Quarter: 2015Q2

REPORT INFORMATION
  Report Type: Spontaneous
  Country: US (occurrence: US)
  Receive Date: 20150324
  Receipt Date: 20150602
  Transmission Date: 20150821
  Serious: No
  Sender: FDA-Public Use
  Company Number: US-PFIZER INC-2015099745

PATIENT
  Age: 60 Year
  Sex: Female
  Weight: 104 kg

DRUGS (7)
  1. NEURONTIN [Suspect]
     Active Substance: GABAPENTIN
     Indication: FIBROMYALGIA
     Dosage: 300 MG, 3X/DAY
  2. TOPAMAX [Concomitant]
     Active Substance: TOPIRAMATE
     Dosage: 200 MG, 2X/DAY
  3. CYMBALTA [Concomitant]
     Active Substance: DULOXETINE HYDROCHLORIDE
     Indication: MIGRAINE
  4. HYDROCODONE [Concomitant]
     Active Substance: HYDROCODONE
  5. GABAPENTIN. [Suspect]
     Active Substance: GABAPENTIN
     Indication: FIBROMYALGIA
     Dosage: UNK
  6. CYMBALTA [Concomitant]
     Active Substance: DULOXETINE HYDROCHLORIDE
     Indication: FIBROMYALGIA
     Dosage: UNK, 1X/DAY
  7. TIZANIDINE (TIZANIDINE) [Concomitant]
     Active Substance: TIZANIDINE
     Dosage: UNK

REACTIONS (3)
  - Skin disorder [Unknown]
  - Drug ineffective for unapproved indication [Unknown]
  - Pain [Unknown]
